FAERS Safety Report 5283570-3 (Version None)
Quarter: 2007Q2

REPORT INFORMATION
  Report Type: 
  Country: None (occurrence: None)
  Receive Date: 20070402
  Receipt Date: 20070322
  Transmission Date: 20071010
  Serious: Yes (Hospitalization)
  Sender: FDA-Public Use
  Company Number: JP-ROCHE-485708

PATIENT
  Age: 5 Year
  Sex: Female
  Weight: 17 kg

DRUGS (27)
  1. CELLCEPT [Suspect]
     Route: 048
  2. CELLCEPT [Suspect]
     Route: 048
     Dates: start: 20051215, end: 20060717
  3. CELLCEPT [Suspect]
     Route: 048
     Dates: start: 20060718, end: 20070205
  4. CELLCEPT [Suspect]
     Dosage: DISCONTINUED.
     Route: 048
     Dates: start: 20070206, end: 20070301
  5. AZATHIOPRINE [Suspect]
     Route: 048
     Dates: start: 20040928, end: 20051201
  6. ENDOXAN [Suspect]
     Dosage: DOSE REPORTED AS ^IN LARGE QUANTITIES SEVEN-TIME TOTAL 6 G/M^3
     Route: 042
     Dates: start: 20040215, end: 20040911
  7. ENDOXAN [Suspect]
     Route: 042
     Dates: start: 20051125, end: 20051125
  8. RITUXAN [Suspect]
     Route: 041
     Dates: start: 20041115
  9. RITUXAN [Suspect]
     Route: 041
     Dates: start: 20051114
  10. RITUXAN [Suspect]
     Route: 041
     Dates: end: 20060512
  11. VENOGLOBULIN-I [Suspect]
     Indication: HYPOGAMMAGLOBULINAEMIA
     Route: 065
     Dates: start: 20051115, end: 20060815
  12. IMMUNE GLOBULIN INTRAVENOUS (HUMAN) [Suspect]
     Indication: HYPOGAMMAGLOBULINAEMIA
     Route: 065
     Dates: start: 20051115, end: 20060815
  13. GAMIMUNE N 5% [Suspect]
     Indication: HYPOGAMMAGLOBULINAEMIA
     Route: 065
     Dates: start: 20051115, end: 20060815
  14. DIAMOX [Concomitant]
     Route: 048
     Dates: start: 20060110
  15. PREDNISOLONE [Concomitant]
     Route: 048
     Dates: start: 20060110
  16. BAKTAR [Concomitant]
     Route: 048
     Dates: start: 20070110
  17. NU-LOTAN [Concomitant]
     Route: 048
     Dates: start: 20070110, end: 20070313
  18. ALFAROL [Concomitant]
     Route: 048
     Dates: start: 20070110, end: 20070313
  19. ODRIC [Concomitant]
     Route: 048
     Dates: start: 20060110
  20. LOPEMIN [Concomitant]
     Route: 048
     Dates: start: 20060302
  21. LAC B [Concomitant]
     Route: 048
     Dates: start: 20060302
  22. MUCODYNE [Concomitant]
     Route: 048
     Dates: start: 20060302
  23. FERRIC PYROPHOSPHATE [Concomitant]
     Dosage: DRUG REPORTED AS INCREMIN
     Route: 048
     Dates: start: 20060527
  24. ERYTHROCIN [Concomitant]
     Route: 048
     Dates: start: 20060527
  25. PREDONINE [Concomitant]
     Route: 048
     Dates: start: 20060527, end: 20060527
  26. ECOLICIN [Concomitant]
     Route: 031
     Dates: start: 20060718
  27. ZOVIRAX [Concomitant]
     Route: 061
     Dates: start: 20061114

REACTIONS (3)
  - HYPOGAMMAGLOBULINAEMIA [None]
  - LYMPHADENITIS [None]
  - MENINGITIS ASEPTIC [None]
